FAERS Safety Report 14280876 (Version 1)
Quarter: 2017Q4

REPORT INFORMATION
  Report Type: Spontaneous
  Country: US (occurrence: US)
  Receive Date: 20171213
  Receipt Date: 20171213
  Transmission Date: 20180321
  Serious: Yes (Other)
  Sender: FDA-Public Use
  Company Number: None

PATIENT
  Age: 38 Year
  Sex: Female
  Weight: 83.25 kg

DRUGS (10)
  1. PHENTERMINE. [Concomitant]
     Active Substance: PHENTERMINE
  2. FLUOXITENE [Concomitant]
  3. MAGNESIUM [Concomitant]
     Active Substance: MAGNESIUM
  4. ELIDEL [Concomitant]
     Active Substance: PIMECROLIMUS
  5. TOPAMAX [Suspect]
     Active Substance: TOPIRAMATE
     Indication: WEIGHT DECREASED
     Dosage: ?          QUANTITY:1 TABLET(S);?
     Route: 048
     Dates: start: 20170701, end: 20170801
  6. BETAFOOD AF [Concomitant]
  7. ZYRTEC [Concomitant]
     Active Substance: CETIRIZINE HYDROCHLORIDE
  8. CHROMIUM PICOLONATE [Concomitant]
  9. BIOTIN [Concomitant]
     Active Substance: BIOTIN
  10. PLAQUINIL [Concomitant]

REACTIONS (19)
  - Pain in extremity [None]
  - Hypoaesthesia [None]
  - Blood alkaline phosphatase increased [None]
  - Antinuclear antibody positive [None]
  - Paraesthesia [None]
  - Biliary colic [None]
  - Blister [None]
  - Skin mass [None]
  - Platelet count increased [None]
  - Drug ineffective [None]
  - Diffuse alopecia [None]
  - Mouth ulceration [None]
  - Burning sensation [None]
  - Thrombocytosis [None]
  - Scab [None]
  - Lupus-like syndrome [None]
  - Hyperkeratosis [None]
  - Raynaud^s phenomenon [None]
  - Alopecia [None]

NARRATIVE: CASE EVENT DATE: 20170801
